FAERS Safety Report 13181456 (Version 1)
Quarter: 2017Q1

REPORT INFORMATION
  Report Type: Spontaneous
  Country: US (occurrence: US)
  Receive Date: 20170202
  Receipt Date: 20170202
  Transmission Date: 20170428
  Serious: Yes (Other)
  Sender: FDA-Public Use
  Company Number: US-PFIZER INC-2017042577

PATIENT
  Sex: Female

DRUGS (1)
  1. CHANTIX [Suspect]
     Active Substance: VARENICLINE TARTRATE
     Dosage: UNK

REACTIONS (9)
  - Heart rate increased [Unknown]
  - Feeling abnormal [Unknown]
  - Anxiety [Unknown]
  - Eye disorder [Unknown]
  - Feeling jittery [Unknown]
  - Seizure [Unknown]
  - Tremor [Unknown]
  - Movement disorder [Unknown]
  - Abnormal behaviour [Unknown]
